FAERS Safety Report 8011822-2 (Version None)
Quarter: 2011Q4

REPORT INFORMATION
  Report Type: 
  Country: None (occurrence: None)
  Receive Date: 20111228
  Receipt Date: 20111222
  Transmission Date: 20120403
  Serious: Yes (Disabling)
  Sender: FDA-Public Use
  Company Number: US-PFIZER INC-2011312051

PATIENT
  Sex: Female

DRUGS (6)
  1. AMBIEN [Suspect]
     Indication: INSOMNIA
     Dosage: 12.5 MG, DAILY AT BEDTIME
     Dates: end: 20111025
  2. ADDERALL 5 [Concomitant]
     Indication: ATTENTION DEFICIT/HYPERACTIVITY DISORDER
     Dosage: 60 MG, 3X/DAY
  3. PRISTIQ [Concomitant]
     Indication: DEPRESSION
     Dosage: UNK, DAILY
  4. XANAX [Suspect]
     Dosage: 8 MG, 1X/DAY
     Dates: start: 20080101, end: 20111025
  5. DEPAKOTE [Concomitant]
     Dosage: 1000 MG, DAILY AT BEDTIME
  6. MIRTAZAPINE [Concomitant]
     Indication: DEPRESSION
     Dosage: 30 MG, DAILY

REACTIONS (15)
  - CARDIAC DISORDER [None]
  - PALPITATIONS [None]
  - DYSKINESIA [None]
  - NERVOUSNESS [None]
  - ACTIVITIES OF DAILY LIVING IMPAIRED [None]
  - ROAD TRAFFIC ACCIDENT [None]
  - VISION BLURRED [None]
  - MUSCLE TWITCHING [None]
  - FALL [None]
  - FACIAL SPASM [None]
  - DEPENDENCE [None]
  - PANIC ATTACK [None]
  - ANXIETY [None]
  - DYSPNOEA [None]
  - WITHDRAWAL SYNDROME [None]
